FAERS Safety Report 7959557-6 (Version None)
Quarter: 2011Q4

REPORT INFORMATION
  Report Type: 
  Country: None (occurrence: None)
  Receive Date: 20111206
  Receipt Date: 20111124
  Transmission Date: 20120403
  Serious: Yes (Other)
  Sender: FDA-Public Use
  Company Number: GB-ROCHE-1016212

PATIENT
  Age: 83 Year
  Sex: Male
  Weight: 75 kg

DRUGS (14)
  1. METFORMIN HCL [Concomitant]
     Dates: start: 20110808
  2. PROPRANOLOL [Concomitant]
     Dates: start: 20110808
  3. PRAVASTATIN [Concomitant]
     Dates: start: 20110808
  4. QVAR 40 [Concomitant]
     Dates: start: 20110905, end: 20111025
  5. RAMIPRIL [Concomitant]
     Dates: start: 20110808
  6. NAPROXEN [Suspect]
     Indication: PRODUCT USED FOR UNKNOWN INDICATION
     Dates: start: 20110929
  7. INDAPAMIDE [Concomitant]
     Dates: start: 20110808
  8. MEBEVERINE HYDROCHLORIDE [Concomitant]
     Dates: start: 20110811, end: 20110908
  9. GLIPIZIDE [Concomitant]
     Dates: start: 20110808
  10. NIFEDIPINE [Concomitant]
     Dates: start: 20110808
  11. DEPO-MEDROL [Concomitant]
     Dates: start: 20111101, end: 20111102
  12. QVAR 40 [Concomitant]
     Dates: start: 20110712, end: 20110831
  13. DEPO-MEDROL [Concomitant]
     Dates: start: 20111014, end: 20111015
  14. OMEPRAZOLE [Concomitant]
     Dates: start: 20111101

REACTIONS (2)
  - RECTAL HAEMORRHAGE [None]
  - EPISTAXIS [None]
